FAERS Safety Report 8926008 (Version 3)
Quarter: 2013Q1

REPORT INFORMATION
  Report Type: Spontaneous
  Country: US (occurrence: US)
  Receive Date: 20121126
  Receipt Date: 20130118
  Transmission Date: 20140127
  Serious: Yes (Hospitalization)
  Sender: FDA-Public Use
  Company Number: US-BAYER-2012-120009

PATIENT
  Age: 47 Year
  Sex: Female
  Weight: 122.45 kg

DRUGS (25)
  1. OCELLA [Suspect]
     Dosage: UNK
     Dates: start: 201007, end: 201010
  2. TYLENOL [Concomitant]
     Indication: ANALGESIC THERAPY
     Dosage: UNK, AS NEEDED
  3. DIETARY SUPPLEMENTS [Concomitant]
     Dosage: UNK
  4. STEROIDS [Concomitant]
     Dosage: UNK
  5. HYDROCORTISONE [Concomitant]
     Indication: SUPPLEMENTATION THERAPY
     Dosage: UNK
  6. SYNTHROID [Concomitant]
     Indication: HYPOTHYROIDISM
     Dosage: UNK
  7. ENALAPRIL [Concomitant]
     Indication: HYPERTENSION
     Dosage: UNK
  8. DETROL [Concomitant]
     Indication: URINARY INCONTINENCE
     Dosage: UNK
  9. NEXIUM [Concomitant]
     Indication: GASTROOESOPHAGEAL REFLUX DISEASE
     Dosage: UNK
  10. CRESTOR [Concomitant]
     Indication: BLOOD CHOLESTEROL ABNORMAL
     Dosage: UNK
  11. FISH OIL [Concomitant]
     Indication: BLOOD CHOLESTEROL ABNORMAL
     Dosage: UNK
  12. ADVAIR [Concomitant]
     Indication: ASTHMA
     Dosage: UNK
  13. VENETLIN [Concomitant]
     Indication: ASTHMA
  14. SOMATROPIN [Concomitant]
     Indication: GROWTH HORMONE DEFICIENCY
     Dosage: UNK
  15. GENATROPINE [Concomitant]
     Indication: GROWTH HORMONE DEFICIENCY
     Dosage: UNK
  16. JANUMET [Concomitant]
     Indication: DIABETES MELLITUS
     Dosage: UNK
  17. JANUVIA [Concomitant]
     Indication: DIABETES MELLITUS
     Dosage: UNK
  18. ACE INHIBITORS AND DIURETICS [Concomitant]
     Dosage: UNK
     Dates: start: 1990, end: 2011
  19. LEVAQUIN [Concomitant]
     Indication: URINARY TRACT INFECTION
  20. ZOCOR [Concomitant]
  21. PEPCID [Concomitant]
  22. JASMINE [Concomitant]
  23. LISINOPRIL [Concomitant]
  24. TRICOR [Concomitant]
  25. NITROGLYCERINE [Concomitant]

REACTIONS (9)
  - Cerebrovascular accident [None]
  - Cerebral thrombosis [None]
  - Pain [None]
  - Injury [None]
  - General physical health deterioration [None]
  - Anxiety [None]
  - Anhedonia [None]
  - Pain [None]
  - Emotional distress [None]
